FAERS Safety Report 9159759 (Version 3)
Quarter: 2013Q2

REPORT INFORMATION
  Report Type: Spontaneous
  Country: US (occurrence: US)
  Receive Date: 20130313
  Receipt Date: 20130625
  Transmission Date: 20140414
  Serious: No
  Sender: FDA-Public Use
  Company Number: US-PFIZER INC-2013081627

PATIENT
  Age: 52 Year
  Sex: Male
  Weight: 85.71 kg

DRUGS (8)
  1. SUTENT [Suspect]
     Indication: RENAL CELL CARCINOMA
     Dosage: 50 MG, DAILY 28 D ON FOLLOWED BY 14 D OFF
     Dates: start: 20130225
  2. ZOFRAN [Concomitant]
     Dosage: UNK
     Dates: end: 20130620
  3. COMPAZINE [Concomitant]
     Dosage: UNK
  4. LORTAB [Concomitant]
     Dosage: UNK
  5. ASPIRIN [Concomitant]
     Dosage: UNK
  6. ROLAIDS [Concomitant]
     Dosage: UNK
  7. ZANTAC [Concomitant]
     Dosage: UNK
  8. ENSURE [Concomitant]
     Dosage: 2 CANS, DAILY

REACTIONS (15)
  - Vomiting [Unknown]
  - Feeling abnormal [Unknown]
  - Pain in extremity [Unknown]
  - Dyspnoea [Unknown]
  - Dyspepsia [Not Recovered/Not Resolved]
  - Diarrhoea [Unknown]
  - Insomnia [Unknown]
  - Pain in jaw [Unknown]
  - Erythema [Not Recovered/Not Resolved]
  - Skin exfoliation [Not Recovered/Not Resolved]
  - Fatigue [Not Recovered/Not Resolved]
  - Dysgeusia [Unknown]
  - Decreased appetite [Unknown]
  - Weight decreased [Unknown]
  - Nausea [Unknown]
